FAERS Safety Report 8098462-4 (Version None)
Quarter: 2012Q1

REPORT INFORMATION
  Report Type: 
  Country: None (occurrence: None)
  Receive Date: 20120129
  Receipt Date: 20110930
  Transmission Date: 20120608
  Serious: No
  Sender: FDA-Public Use
  Company Number: US-ABBOTT-11P-163-0860350-00

PATIENT
  Age: 74 Year
  Sex: Male

DRUGS (13)
  1. ALLERTEC [Concomitant]
     Indication: SEASONAL ALLERGY
     Dosage: DAILY
  2. VITAMIN B-12 [Concomitant]
     Indication: VITAMIN SUPPLEMENTATION
  3. NARATRIPTAN HYDROCHLORIDE (AMERGE) [Concomitant]
     Indication: SINUS HEADACHE
  4. HUMIRA [Suspect]
     Indication: PSORIASIS
     Dates: start: 20101101
  5. POTASSIUM CITRATE [Concomitant]
     Indication: PROPHYLAXIS
  6. LOVAZA [Concomitant]
     Indication: SUPPLEMENTATION THERAPY
     Dosage: DAILY
  7. POTASSIUM CITRATE [Concomitant]
     Indication: NEPHROLITHIASIS
     Dosage: AFTER MEALS
  8. HYDROCHLOROTHIAZIDE [Concomitant]
     Indication: PRODUCT USED FOR UNKNOWN INDICATION
     Dosage: DAILY
  9. MAGNESIUM [Concomitant]
     Indication: MINERAL SUPPLEMENTATION
     Dosage: DAILY
  10. HYDROCHLOROTHIAZIDE [Concomitant]
     Dosage: CURRENTLY TAKING 2 PILLS FOR 2-3 DAYS
  11. VIT D3 [Concomitant]
     Indication: ARTHRALGIA
  12. TURMERIC [Concomitant]
     Indication: PSORIASIS
     Dosage: DAILY
  13. RANITIDINE [Concomitant]
     Indication: GASTROOESOPHAGEAL REFLUX DISEASE
     Dosage: DAILY

REACTIONS (1)
  - OEDEMA PERIPHERAL [None]
